FAERS Safety Report 19232956 (Version 1)
Quarter: 2021Q2

REPORT INFORMATION
  Report Type: Report from Study
  Country: None (occurrence: DE)
  Receive Date: 20210507
  Receipt Date: 20210507
  Transmission Date: 20210717
  Serious: Yes (Hospitalization, Other)
  Sender: FDA-Public Use
  Company Number: DE-ABBVIE-21K-062-3890627-00

PATIENT
  Age: 79 Year
  Sex: Male

DRUGS (7)
  1. DUODOPA [Suspect]
     Active Substance: CARBIDOPA\LEVODOPA
     Indication: PARKINSON^S DISEASE
     Dosage: MD 10ML, CRD 3.7ML/H ED 1ML
     Route: 050
     Dates: start: 20190916, end: 202104
  2. NEUPRO [Concomitant]
     Active Substance: ROTIGOTINE
     Indication: PRODUCT USED FOR UNKNOWN INDICATION
  3. ASPIRIN. [Concomitant]
     Active Substance: ASPIRIN
     Indication: PRODUCT USED FOR UNKNOWN INDICATION
  4. SIMVASTATIN. [Concomitant]
     Active Substance: SIMVASTATIN
     Indication: PRODUCT USED FOR UNKNOWN INDICATION
  5. DUODOPA [Suspect]
     Active Substance: CARBIDOPA\LEVODOPA
     Dosage: MD 10ML, CRD 3.6ML/H ED 1ML
     Route: 050
     Dates: start: 202104
  6. VIGANTOLETTEN [Concomitant]
     Active Substance: CHOLECALCIFEROL
     Indication: PRODUCT USED FOR UNKNOWN INDICATION
  7. ACTRAPID [Concomitant]
     Active Substance: INSULIN HUMAN
     Indication: PRODUCT USED FOR UNKNOWN INDICATION
     Dosage: FORM STRENGTH: 100IE/ML

REACTIONS (5)
  - Arrhythmia [Recovered/Resolved]
  - Dizziness [Recovered/Resolved]
  - Weight decreased [Recovering/Resolving]
  - Cerebrovascular accident [Recovered/Resolved]
  - Hypermobility syndrome [Recovered/Resolved]

NARRATIVE: CASE EVENT DATE: 202104
